FAERS Safety Report 25954122 (Version 1)
Quarter: 2025Q4

REPORT INFORMATION
  Report Type: Spontaneous
  Country: US (occurrence: US)
  Receive Date: 20251023
  Receipt Date: 20251023
  Transmission Date: 20260117
  Serious: Yes (Other)
  Sender: ABBVIE
  Company Number: US-ABBVIE-6512098

PATIENT
  Sex: Female

DRUGS (2)
  1. REFRESH CELLUVISC [Suspect]
     Active Substance: CARBOXYMETHYLCELLULOSE SODIUM
     Indication: Dry eye
     Dosage: PRESERVATIVE FREE.?USES AT NIGHT.?PATIENT ROA: OPHTHALMIC
     Route: 065
  2. REFRESH OPTIVE [Suspect]
     Active Substance: CARBOXYMETHYLCELLULOSE SODIUM\GLYCERIN
     Indication: Dry eye
     Dosage: PATIENT ROA: OPHTHALMIC
     Route: 065

REACTIONS (6)
  - Eye operation [Unknown]
  - Therapeutic product effect decreased [Unknown]
  - Physical product label issue [Unknown]
  - Eye pain [Unknown]
  - Eye disorder [Unknown]
  - Off label use [Unknown]
